FAERS Safety Report 4618813-X (Version None)
Quarter: 2005Q1

REPORT INFORMATION
  Report Type: 
  Country: None (occurrence: None)
  Receive Date: 20050323
  Receipt Date: 20050308
  Transmission Date: 20050727
  Serious: Yes (Hospitalization, Other)
  Sender: FDA-Public Use
  Company Number: USA040363116

PATIENT
  Age: 78 Year
  Sex: Male
  Weight: 78 kg

DRUGS (16)
  1. FORTEO [Suspect]
     Indication: OSTEOPOROSIS
     Dosage: 20 UG/1 DAY
     Dates: start: 20030818
  2. METHOTREXATE [Concomitant]
  3. VICODIN [Concomitant]
  4. NEXIUM [Concomitant]
  5. ULTRAM [Concomitant]
  6. CELEBREX [Concomitant]
  7. ZOCOR [Concomitant]
  8. LANOXIN [Concomitant]
  9. MULTI-VITAMINS [Concomitant]
  10. CACLIUM [Concomitant]
  11. LEVOTHYROXINE [Concomitant]
  12. VALIUM [Concomitant]
  13. DURAGESIC 9FENTANYL) [Concomitant]
  14. LIPITOR [Concomitant]
  15. PREVACID [Concomitant]
  16. NEURONTIN (GABAPENTIN PFIZER) [Concomitant]

REACTIONS (7)
  - FALL [None]
  - HEAD INJURY [None]
  - JOINT DISLOCATION [None]
  - LOSS OF CONSCIOUSNESS [None]
  - PHARMACEUTICAL PRODUCT COMPLAINT [None]
  - SUBDURAL HAEMATOMA [None]
  - THROMBOSIS [None]
